FAERS Safety Report 7349244-X (Version None)
Quarter: 2011Q1

REPORT INFORMATION
  Report Type: 
  Country: None (occurrence: None)
  Receive Date: 20110225
  Receipt Date: 20101207
  Transmission Date: 20110831
  Serious: Yes (Hospitalization)
  Sender: FDA-Public Use
  Company Number: 314485

PATIENT
  Age: 63 Year
  Sex: Male

DRUGS (19)
  1. VALIUM [Concomitant]
  2. ASTELIN /00884002/ (AZELASTINE HYDROCHLORIDE) [Concomitant]
  3. SINGULAIR [Concomitant]
  4. FOLIC ACID [Concomitant]
  5. HUMALOG [Concomitant]
  6. VICTOZA [Suspect]
     Indication: TYPE 2 DIABETES MELLITUS
     Dosage: 0.6 MG, QD, SUBCUTANEOUS, 1.2 MG, QD, SUBCUTANEOUS, 1.8 MG, QD, SUBCUTANEOUS
     Route: 058
     Dates: start: 20100701, end: 20100701
  7. VICTOZA [Suspect]
     Indication: TYPE 2 DIABETES MELLITUS
     Dosage: 0.6 MG, QD, SUBCUTANEOUS, 1.2 MG, QD, SUBCUTANEOUS, 1.8 MG, QD, SUBCUTANEOUS
     Route: 058
     Dates: start: 20100701, end: 20100823
  8. VICTOZA [Suspect]
     Indication: TYPE 2 DIABETES MELLITUS
     Dosage: 0.6 MG, QD, SUBCUTANEOUS, 1.2 MG, QD, SUBCUTANEOUS, 1.8 MG, QD, SUBCUTANEOUS
     Route: 058
     Dates: start: 20100701, end: 20100701
  9. INSULIN REGULAR /01223201/ (INSULIN BOVINE) [Concomitant]
  10. ALLEGRA [Concomitant]
  11. LIPITOR [Concomitant]
  12. BENICAR HCT [Concomitant]
  13. ZANAFLEX [Concomitant]
  14. ANDROGEL [Concomitant]
  15. OXYCODONE (OXYCODONE) [Concomitant]
  16. HUMULIN N [Concomitant]
  17. SEROQUEL XR [Concomitant]
  18. ZOLOFT [Concomitant]
  19. VENTOLIN [Concomitant]

REACTIONS (1)
  - PANCREATITIS ACUTE [None]
